FAERS Safety Report 14237277 (Version 1)
Quarter: 2017Q4

REPORT INFORMATION
  Report Type: Report from Study
  Country: DE (occurrence: DE)
  Receive Date: 20171129
  Receipt Date: 20171129
  Transmission Date: 20180321
  Serious: Yes (Other)
  Sender: FDA-Public Use
  Company Number: DE-SHIRE-DE201730685

PATIENT

DRUGS (2)
  1. REVESTIVE [Suspect]
     Active Substance: TEDUGLUTIDE
     Indication: SHORT-BOWEL SYNDROME
     Dosage: 0.34 ML, 1X/DAY:QD
     Route: 058
     Dates: start: 20170426
  2. PANTOZOL [Concomitant]
     Active Substance: PANTOPRAZOLE SODIUM
     Indication: PRODUCT USED FOR UNKNOWN INDICATION

REACTIONS (5)
  - Stoma site haemorrhage [Unknown]
  - Abdominal pain [Unknown]
  - Abdominal distension [Unknown]
  - Stoma complication [Unknown]
  - Nausea [Unknown]

NARRATIVE: CASE EVENT DATE: 20171030
